FAERS Safety Report 11402473 (Version 1)
Quarter: 2015Q3

REPORT INFORMATION
  Report Type: Spontaneous
  Country: US (occurrence: US)
  Receive Date: 20150821
  Receipt Date: 20150821
  Transmission Date: 20151125
  Serious: No
  Sender: FDA-Public Use
  Company Number: US-ROCHE-1316142

PATIENT
  Age: 40 Year
  Sex: Female
  Weight: 70.37 kg

DRUGS (4)
  1. NEUPOGEN [Concomitant]
     Active Substance: FILGRASTIM
     Route: 058
  2. PEGASYS [Suspect]
     Active Substance: PEGINTERFERON ALFA-2A
     Indication: HEPATITIS C
     Route: 058
     Dates: start: 20130726
  3. RIBASPHERE [Suspect]
     Active Substance: RIBAVIRIN
     Indication: HEPATITIS C
     Route: 048
     Dates: start: 20130726
  4. PROCRIT [Concomitant]
     Active Substance: ERYTHROPOIETIN
     Route: 058

REACTIONS (1)
  - Alopecia [Not Recovered/Not Resolved]

NARRATIVE: CASE EVENT DATE: 20131122
